FAERS Safety Report 6130437-4 (Version None)
Quarter: 2009Q1

REPORT INFORMATION
  Report Type: 
  Country: None (occurrence: None)
  Receive Date: 20090324
  Receipt Date: 20090317
  Transmission Date: 20090719
  Serious: Yes (Other)
  Sender: FDA-Public Use
  Company Number: US-GENENTECH-278466

PATIENT
  Sex: Male
  Weight: 35.374 kg

DRUGS (4)
  1. XOLAIR [Suspect]
     Indication: DRUG USE FOR UNKNOWN INDICATION
     Dosage: 225 MG, 2/MONTH
     Route: 058
     Dates: start: 20081204
  2. IMMUNOTHERAPY (ANTIGEN UNKNOWN) [Concomitant]
     Indication: DRUG USE FOR UNKNOWN INDICATION
  3. TAMIFLU [Concomitant]
     Indication: DRUG USE FOR UNKNOWN INDICATION
  4. AMANTADINE HCL [Concomitant]
     Indication: DRUG USE FOR UNKNOWN INDICATION
     Dosage: 100 MG, UNK

REACTIONS (1)
  - PSYCHOTIC DISORDER [None]
